FAERS Safety Report 10640886 (Version 1)
Quarter: 2014Q4

REPORT INFORMATION
  Report Type: Other
  Country: CA (occurrence: CA)
  Receive Date: 20141209
  Receipt Date: 20141209
  Transmission Date: 20150529
  Serious: Yes (Other)
  Sender: FDA-Public Use
  Company Number: CA-APOTEX-2014AP005913

PATIENT
  Age: 54 Year
  Sex: Female
  Weight: 160 kg

DRUGS (1)
  1. APO QUINAPRIL/HCTZ [Suspect]
     Active Substance: HYDROCHLOROTHIAZIDE\QUINAPRIL HYDROCHLORIDE
     Indication: PRODUCT USED FOR UNKNOWN INDICATION
     Dosage: 1 DF, QD

REACTIONS (4)
  - Blood pressure increased [Recovered/Resolved]
  - Headache [Recovered/Resolved]
  - Irritability [Recovered/Resolved]
  - Chest discomfort [Recovered/Resolved]
